FAERS Safety Report 4853004-9 (Version None)
Quarter: 2005Q4

REPORT INFORMATION
  Report Type: 
  Country: None (occurrence: None)
  Receive Date: 20051212
  Receipt Date: 20051129
  Transmission Date: 20060501
  Serious: Yes (Disabling, Other)
  Sender: FDA-Public Use
  Company Number: HQWYE792501DEC05

PATIENT
  Age: 59 Year
  Sex: Female
  Weight: 40.86 kg

DRUGS (1)
  1. PREMARIN [Suspect]
     Dosage: 0.625 MG 1X PER 1 DAY, ORAL
     Route: 048
     Dates: start: 19750101

REACTIONS (2)
  - BLINDNESS UNILATERAL [None]
  - GLAUCOMA [None]
